FAERS Safety Report 24112193 (Version 3)
Quarter: 2024Q4

REPORT INFORMATION
  Report Type: Report from Study
  Country: SA (occurrence: SA)
  Receive Date: 20240719
  Receipt Date: 20241017
  Transmission Date: 20250115
  Serious: Yes (Other)
  Sender: AEGERION
  Company Number: SA-AMRYT PHARMACEUTICALS DAC-AEGR007277

PATIENT

DRUGS (4)
  1. LOMITAPIDE [Suspect]
     Active Substance: LOMITAPIDE
     Indication: Type IIa hyperlipidaemia
     Dosage: 20 MILLIGRAM
     Route: 048
     Dates: start: 20231031, end: 20240709
  2. LOMITAPIDE [Suspect]
     Active Substance: LOMITAPIDE
     Dosage: 20 MILLIGRAM, QD
     Dates: start: 20240723, end: 20241007
  3. LOMITAPIDE [Suspect]
     Active Substance: LOMITAPIDE
     Dosage: 20 MILLIGRAM, QD
     Dates: start: 20241010
  4. ROSUVASTATIN [Concomitant]
     Active Substance: ROSUVASTATIN
     Indication: Hypercholesterolaemia
     Dosage: 40 MILLIGRAM, QD
     Route: 048
     Dates: start: 20130101

REACTIONS (6)
  - Deafness [Recovering/Resolving]
  - Pneumonia [Recovering/Resolving]
  - Oropharyngeal pain [Recovering/Resolving]
  - Diarrhoea [Recovered/Resolved]
  - Abdominal discomfort [Recovered/Resolved]
  - Product dose omission issue [Recovering/Resolving]

NARRATIVE: CASE EVENT DATE: 20240707
